FAERS Safety Report 12753410 (Version 1)
Quarter: 2016Q3

REPORT INFORMATION
  Report Type: Spontaneous
  Country: IN (occurrence: IN)
  Receive Date: 20160916
  Receipt Date: 20160916
  Transmission Date: 20161109
  Serious: No
  Sender: FDA-Public Use
  Company Number: IN-LUPIN PHARMACEUTICALS INC.-E2B_00004963

PATIENT
  Age: 4 Year
  Sex: Male

DRUGS (2)
  1. CETIL DRY SYRUP [Suspect]
     Active Substance: CEFUROXIME AXETIL
     Indication: EAR INFECTION
     Route: 048
     Dates: start: 20160219
  2. BIOMYCETIN [Concomitant]
     Indication: EAR INFECTION
     Route: 065
     Dates: start: 20160219

REACTIONS (1)
  - Diarrhoea [Not Recovered/Not Resolved]

NARRATIVE: CASE EVENT DATE: 20160220
